FAERS Safety Report 19699429 (Version 1)
Quarter: 2021Q3

REPORT INFORMATION
  Report Type: Spontaneous
  Country: DE (occurrence: DE)
  Receive Date: 20210813
  Receipt Date: 20210813
  Transmission Date: 20211014
  Serious: Yes (Other)
  Sender: FDA-Public Use
  Company Number: NVSC2021DE178593

PATIENT
  Age: 60 Year
  Sex: Male

DRUGS (3)
  1. CARBOPLATIN. [Suspect]
     Active Substance: CARBOPLATIN
     Indication: METASTATIC BRONCHIAL CARCINOMA
     Dosage: 4 CYCLES
     Route: 065
     Dates: start: 202005, end: 20200723
  2. PEMETREXED. [Suspect]
     Active Substance: PEMETREXED
     Indication: METASTATIC BRONCHIAL CARCINOMA
     Dosage: 4 CYCLES
     Route: 065
     Dates: start: 202005, end: 20200723
  3. KEYTRUDA [Suspect]
     Active Substance: PEMBROLIZUMAB
     Indication: METASTATIC BRONCHIAL CARCINOMA
     Dosage: 200 MG
     Route: 065
     Dates: start: 202005, end: 20210714

REACTIONS (3)
  - C-reactive protein increased [Unknown]
  - Pleural effusion [Unknown]
  - Ascites [Unknown]

NARRATIVE: CASE EVENT DATE: 2021
